FAERS Safety Report 7768867-7 (Version None)
Quarter: 2011Q3

REPORT INFORMATION
  Report Type: 
  Country: None (occurrence: None)
  Receive Date: 20110922
  Receipt Date: 20110506
  Transmission Date: 20111222
  Serious: No
  Sender: FDA-Public Use
  Company Number: US-ASTRAZENECA-2011SE27276

PATIENT
  Age: 63 Year
  Sex: Female
  Weight: 97.5 kg

DRUGS (9)
  1. SEROQUEL [Suspect]
     Indication: SCHIZOPHRENIA
     Dosage: 25 MG IN AM; 25 MG IN AFTERNOON AND 100 MG HS
     Route: 048
     Dates: start: 20101201
  2. ZIAC [Concomitant]
  3. LIDODERM [Concomitant]
  4. PAROXETINE HYDROCHLORIDE [Concomitant]
  5. LORAZEPAM [Concomitant]
  6. SIMVASTATIN [Concomitant]
  7. POTASSIUM [Concomitant]
  8. SEROQUEL [Suspect]
     Indication: BIPOLAR DISORDER
     Dosage: 25 MG IN AM; 25 MG IN AFTERNOON AND 100 MG HS
     Route: 048
     Dates: start: 20101201
  9. RADINE [Concomitant]

REACTIONS (3)
  - LIP DRY [None]
  - LACRIMATION INCREASED [None]
  - LIP PAIN [None]
